FAERS Safety Report 7292917-8 (Version None)
Quarter: 2011Q1

REPORT INFORMATION
  Report Type: 
  Country: None (occurrence: None)
  Receive Date: 20110215
  Receipt Date: 20110208
  Transmission Date: 20110831
  Serious: Yes (Hospitalization)
  Sender: FDA-Public Use
  Company Number: JP-ASTELLAS-2010JP007574

PATIENT
  Sex: Male
  Weight: 50.2 kg

DRUGS (11)
  1. VESICARE [Suspect]
     Indication: HYPERTONIC BLADDER
     Dosage: 5 MG, UID/QD
     Route: 048
     Dates: start: 20101109, end: 20101210
  2. GRAMALIL [Suspect]
     Indication: DEMENTIA
     Dosage: 25 MG, UID/QD
     Route: 048
     Dates: start: 20101007, end: 20101013
  3. DOGMATYL [Suspect]
     Indication: GASTRIC ULCER
     Dosage: 150 MG, UID/QD
     Route: 048
     Dates: start: 20100709, end: 20101014
  4. BLOPRESS [Concomitant]
     Indication: ANGINA PECTORIS
     Dosage: 4 MG, UID/QD
     Route: 048
     Dates: start: 20101007, end: 20101013
  5. VESICARE [Suspect]
     Indication: DYSURIA
  6. ARICEPT [Concomitant]
     Indication: DEMENTIA
     Dosage: 3 MG, UNKNOWN/D
     Route: 048
     Dates: start: 20101007, end: 20101013
  7. CYMBALTA [Concomitant]
     Indication: DEMENTIA
     Dosage: 20 MG, UID/QD
     Route: 048
     Dates: start: 20100709, end: 20100801
  8. ASPIRIN [Concomitant]
     Indication: ANGINA PECTORIS
     Dosage: 100 MG, UID/QD
     Route: 048
     Dates: start: 20101007
  9. HALTHROW [Suspect]
     Indication: DYSURIA
     Dosage: 0.2 MG, UID/QD
     Route: 048
     Dates: start: 20101007, end: 20101210
  10. MAGLAX [Concomitant]
     Indication: CONSTIPATION
     Dosage: 330 MG, TID
     Route: 048
     Dates: start: 20101007
  11. ARICEPT [Concomitant]
     Dosage: 5 MG, UID/QD
     Route: 048
     Dates: start: 20101126

REACTIONS (3)
  - HYPERKALAEMIA [None]
  - DYSURIA [None]
  - RENAL FAILURE [None]
